FAERS Safety Report 8306004-0 (Version None)
Quarter: 2012Q1

REPORT INFORMATION
  Report Type: 
  Country: None (occurrence: None)
  Receive Date: 20120327
  Receipt Date: 20091123
  Transmission Date: 20120608
  Serious: Yes (Other)
  Sender: FDA-Public Use
  Company Number: PHEH2009US14440

PATIENT
  Sex: Male

DRUGS (8)
  1. PRAVASTATIN [Concomitant]
  2. POTASSIUM CHLORIDE [Concomitant]
  3. SPRYCEL [Suspect]
     Indication: CHRONIC MYELOID LEUKAEMIA
  4. LOTREL [Concomitant]
  5. TOPROL-XL [Concomitant]
  6. GLEEVEC [Suspect]
     Indication: CHRONIC MYELOID LEUKAEMIA
  7. LASIX [Concomitant]
  8. PLAVIX [Concomitant]

REACTIONS (2)
  - DRUG INEFFECTIVE [None]
  - CARDIAC FAILURE CONGESTIVE [None]
